FAERS Safety Report 15700703 (Version 2)
Quarter: 2019Q2

REPORT INFORMATION
  Report Type: Spontaneous
  Country: US (occurrence: US)
  Receive Date: 20181207
  Receipt Date: 20190507
  Transmission Date: 20190711
  Serious: Yes (Other)
  Sender: FDA-Public Use
  Company Number: US-SA-2018SA331261

PATIENT
  Age: 74 Year
  Sex: Female
  Weight: 44 kg

DRUGS (5)
  1. TAXOTERE [Suspect]
     Active Substance: DOCETAXEL
     Indication: BREAST CANCER FEMALE
     Dosage: 109 MG, Q3W
     Route: 042
     Dates: start: 20120306, end: 20120306
  2. TAXOTERE [Suspect]
     Active Substance: DOCETAXEL
     Dosage: 109 MG, Q3W
     Route: 042
     Dates: start: 20120626, end: 20120626
  3. DOXORUBICIN [Concomitant]
     Active Substance: DOXORUBICIN
  4. NEOSAR [Concomitant]
     Active Substance: CYCLOPHOSPHAMIDE
  5. CYTOXAN [Concomitant]
     Active Substance: CYCLOPHOSPHAMIDE

REACTIONS (1)
  - Alopecia [Recovering/Resolving]

NARRATIVE: CASE EVENT DATE: 2012
